FAERS Safety Report 17348215 (Version 12)
Quarter: 2024Q3

REPORT INFORMATION
  Report Type: Spontaneous
  Country: US (occurrence: US)
  Receive Date: 20200130
  Receipt Date: 20240819
  Transmission Date: 20241016
  Serious: Yes (Hospitalization, Other)
  Sender: PFIZER
  Company Number: US-PFIZER INC-2020039889

PATIENT
  Age: 65 Year
  Sex: Female
  Weight: 90.703 kg

DRUGS (10)
  1. XELJANZ XR [Interacting]
     Active Substance: TOFACITINIB CITRATE
     Indication: Rheumatoid arthritis
     Dosage: 11 MG
     Dates: start: 2012
  2. XELJANZ XR [Interacting]
     Active Substance: TOFACITINIB CITRATE
     Dosage: 11 MG, ONCE A DAY
     Dates: start: 2019
  3. XELJANZ XR [Interacting]
     Active Substance: TOFACITINIB CITRATE
     Dosage: 11 MG, ONCE A DAY
     Dates: start: 20200127, end: 20231013
  4. XELJANZ XR [Interacting]
     Active Substance: TOFACITINIB CITRATE
     Dosage: 11 MG, 1X/DAY
  5. AMLODIPINE BESYLATE [Concomitant]
     Active Substance: AMLODIPINE BESYLATE
     Indication: Blood pressure abnormal
     Dosage: 10 MG, 1X/DAY
     Dates: start: 2008
  6. ATORVASTATIN CALCIUM [Concomitant]
     Active Substance: ATORVASTATIN CALCIUM
     Dosage: 20 MG, 1X/DAY
     Dates: start: 2009
  7. CHOLECALCIFEROL [Concomitant]
     Active Substance: CHOLECALCIFEROL
     Dosage: ONCE A DAY 1000UNITS
  8. PLAQUENIL [Concomitant]
     Active Substance: HYDROXYCHLOROQUINE SULFATE
     Indication: Rheumatoid arthritis
     Dosage: DID NOT TAKE IT ANYMORE
     Dates: start: 20231014
  9. WARFARIN [Concomitant]
     Active Substance: WARFARIN
     Dosage: 5.0 MG, 1X/DAY
     Dates: start: 2010
  10. VITAMIN D NOS [Concomitant]
     Active Substance: CHOLECALCIFEROL\ERGOCALCIFEROL
     Dosage: UNK

REACTIONS (7)
  - Cellulitis [Unknown]
  - Systemic lupus erythematosus [Unknown]
  - Pain [Unknown]
  - Ligament sprain [Not Recovered/Not Resolved]
  - Drug hypersensitivity [Unknown]
  - Drug interaction [Unknown]
  - Large intestine infection [Unknown]

NARRATIVE: CASE EVENT DATE: 20191220
